FAERS Safety Report 10271771 (Version 1)
Quarter: 2014Q3

REPORT INFORMATION
  Report Type: Spontaneous
  Country: US (occurrence: US)
  Receive Date: 20140701
  Receipt Date: 20140701
  Transmission Date: 20150326
  Serious: No
  Sender: FDA-Public Use
  Company Number: -SAAVPROD-CERZ-1003128

PATIENT
  Age: 51 Year
  Sex: Male
  Weight: 73.3 kg

DRUGS (1)
  1. IMIGLUCERASE [Suspect]
     Active Substance: IMIGLUCERASE
     Indication: GAUCHER^S DISEASE
     Dosage: 60 MG/KG, Q2W
     Route: 042
     Dates: start: 20050811

REACTIONS (2)
  - Blood pressure increased [Unknown]
  - Infusion site pain [Unknown]

NARRATIVE: CASE EVENT DATE: 20130727
